FAERS Safety Report 7272065-3 (Version None)
Quarter: 2011Q1

REPORT INFORMATION
  Report Type: 
  Country: None (occurrence: None)
  Receive Date: 20110131
  Receipt Date: 20110131
  Transmission Date: 20110831
  Serious: Yes (Other)
  Sender: FDA-Public Use
  Company Number: None

PATIENT
  Age: 64 Year
  Sex: Male
  Weight: 106.5953 kg

DRUGS (1)
  1. CLONIDINE [Suspect]
     Indication: HYPERTENSION
     Dates: start: 20100810, end: 20100810

REACTIONS (5)
  - PRODUCT SUBSTITUTION ISSUE [None]
  - APPLICATION SITE PAIN [None]
  - HEART RATE DECREASED [None]
  - PRODUCT ADHESION ISSUE [None]
  - UNEVALUABLE EVENT [None]
